FAERS Safety Report 8788927 (Version 3)
Quarter: 2013Q2

REPORT INFORMATION
  Report Type: Spontaneous
  Country: US (occurrence: US)
  Receive Date: 20120917
  Receipt Date: 20130403
  Transmission Date: 20140414
  Serious: No
  Sender: FDA-Public Use
  Company Number: US-PFIZER INC-2012224643

PATIENT
  Age: 78 Year
  Sex: Male

DRUGS (2)
  1. NITROSTAT [Suspect]
     Indication: CHEST PAIN
     Dosage: 0.4 MG, ONCE DAILY AS NEEDED
     Route: 060
     Dates: start: 20120807, end: 201208
  2. NITROSTAT [Suspect]
     Indication: ANGINA PECTORIS

REACTIONS (3)
  - Drug ineffective [Unknown]
  - Burning sensation [Unknown]
  - Product solubility abnormal [Unknown]
